FAERS Safety Report 8188755-4 (Version None)
Quarter: 2012Q1

REPORT INFORMATION
  Report Type: 
  Country: None (occurrence: None)
  Receive Date: 20120306
  Receipt Date: 20120227
  Transmission Date: 20120608
  Serious: No
  Sender: FDA-Public Use
  Company Number: US-PFIZER INC-2012052659

PATIENT
  Age: 64 Year
  Sex: Female

DRUGS (2)
  1. LATANOPROST [Suspect]
     Dosage: UNK
     Route: 047
  2. XALATAN [Suspect]
     Dosage: UNK
     Dates: end: 20120101

REACTIONS (2)
  - ARTHRALGIA [None]
  - DRUG HYPERSENSITIVITY [None]
